FAERS Safety Report 6880038-5 (Version None)
Quarter: 2010Q3

REPORT INFORMATION
  Report Type: 
  Country: None (occurrence: None)
  Receive Date: 20100728
  Receipt Date: 20100715
  Transmission Date: 20110219
  Serious: Yes (Death)
  Sender: FDA-Public Use
  Company Number: DK-WYE-H15830810

PATIENT
  Age: 48 Year
  Sex: Female

DRUGS (1)
  1. CORDARONE [Suspect]
     Indication: ATRIAL FIBRILLATION
     Dosage: DOSE NOT PROVIDED/GIVEN DAILY
     Dates: start: 20091118

REACTIONS (3)
  - ARRHYTHMIA [None]
  - CARDIAC FAILURE ACUTE [None]
  - CORONARY ARTERY STENOSIS [None]
